FAERS Safety Report 9661180 (Version 1)
Quarter: 2013Q4

REPORT INFORMATION
  Report Type: Report from Study
  Country: US (occurrence: US)
  Receive Date: 20131031
  Receipt Date: 20131031
  Transmission Date: 20140711
  Serious: Yes (Other)
  Sender: FDA-Public Use
  Company Number: US-ROCHE-1294963

PATIENT
  Sex: Male

DRUGS (7)
  1. BEVACIZUMAB [Suspect]
     Indication: CYSTOID MACULAR OEDEMA
     Dosage: MOST RECENT 05-JUN-2013
     Route: 065
     Dates: start: 20110809
  2. NEVANAC [Concomitant]
  3. XALATAN [Concomitant]
  4. COMBIGAN [Concomitant]
  5. PRED FORTE [Concomitant]
  6. ALLOPURINOL [Concomitant]
  7. MICARDIS [Concomitant]

REACTIONS (4)
  - Cystoid macular oedema [Unknown]
  - Migraine with aura [Unknown]
  - Eye disorder [Unknown]
  - Diplopia [Unknown]
